FAERS Safety Report 7904408-9 (Version None)
Quarter: 2011Q4

REPORT INFORMATION
  Report Type: 
  Country: None (occurrence: None)
  Receive Date: 20111109
  Receipt Date: 20111101
  Transmission Date: 20120403
  Serious: Yes (Other)
  Sender: FDA-Public Use
  Company Number: US-ABBOTT-11P-163-0870581-00

PATIENT
  Sex: Female
  Weight: 56.75 kg

DRUGS (6)
  1. TOVAZ [Concomitant]
     Indication: CYSTITIS
  2. ASPIRIN [Concomitant]
     Indication: PRODUCT USED FOR UNKNOWN INDICATION
  3. TOPROL-XL [Concomitant]
     Indication: PRODUCT USED FOR UNKNOWN INDICATION
  4. NIASPAN [Suspect]
     Indication: BLOOD CHOLESTEROL INCREASED
     Dosage: AT BEDTIME
     Dates: start: 20110926
  5. NIASPAN [Suspect]
     Indication: LOW DENSITY LIPOPROTEIN
  6. FLECAINIDE ACETATE [Concomitant]
     Indication: PRODUCT USED FOR UNKNOWN INDICATION

REACTIONS (3)
  - PALPITATIONS [None]
  - ATRIAL FIBRILLATION [None]
  - HEART RATE IRREGULAR [None]
